FAERS Safety Report 7244150-3 (Version None)
Quarter: 2011Q1

REPORT INFORMATION
  Report Type: 
  Country: None (occurrence: None)
  Receive Date: 20110125
  Receipt Date: 20110117
  Transmission Date: 20110831
  Serious: Yes (Death, Hospitalization)
  Sender: FDA-Public Use
  Company Number: ES-ROCHE-753819

PATIENT
  Sex: Male
  Weight: 64 kg

DRUGS (5)
  1. IRINOTECAN [Suspect]
     Indication: COLORECTAL CANCER METASTATIC
     Dosage: FORM: INFUSION, LAST DOSE PRIOR TO SAE: 27 DEC 2010
     Route: 042
     Dates: start: 20090511, end: 20110118
  2. BEVACIZUMAB [Suspect]
     Indication: COLORECTAL CANCER METASTATIC
     Dosage: FORM: INFUSION, LAST DOSE PRIOR TO SAE: 27 DEC 2010
     Route: 042
     Dates: start: 20090511, end: 20110116
  3. RONAME [Concomitant]
     Dates: start: 20080501
  4. CAPECITABINE [Suspect]
     Indication: COLORECTAL CANCER METASTATIC
     Dosage: DAYS DAY 1-14, LAST DOSE PRIOR TO SAE: 10 JAN 2011
     Route: 048
     Dates: start: 20090511, end: 20110116
  5. BRIVUDINA [Suspect]
     Route: 065

REACTIONS (3)
  - PANCYTOPENIA [None]
  - MUCOSAL INFLAMMATION [None]
  - NEUTROPENIA [None]
